FAERS Safety Report 10187234 (Version 3)
Quarter: 2014Q3

REPORT INFORMATION
  Report Type: Report from Study
  Country: BE (occurrence: BE)
  Receive Date: 20140522
  Receipt Date: 20140801
  Transmission Date: 20150326
  Serious: Yes (Other)
  Sender: FDA-Public Use
  Company Number: PHHY2014BE054099

PATIENT
  Age: 49 Year
  Sex: Female

DRUGS (6)
  1. BREXINE [Concomitant]
  2. PANTOMED//PANTOPRAZOLE SODIUM SESQUIHYDRATE [Concomitant]
     Indication: ABDOMINAL PAIN UPPER
     Dosage: 40 MG, UNK
  3. ZALDIAR [Concomitant]
     Active Substance: ACETAMINOPHEN\TRAMADOL HYDROCHLORIDE
  4. BRUFEN//IBUPROFEN [Concomitant]
     Dosage: 600 MG, PRN
     Route: 048
  5. GILENYA [Suspect]
     Active Substance: FINGOLIMOD HYDROCHLORIDE
     Indication: MULTIPLE SCLEROSIS
     Dosage: 0.5 MG, QD
     Route: 048
     Dates: start: 20140424
  6. APRANAX [Concomitant]
     Active Substance: NAPROXEN

REACTIONS (3)
  - Chest discomfort [Recovering/Resolving]
  - Dyspnoea [Recovering/Resolving]
  - Heart rate irregular [Recovering/Resolving]

NARRATIVE: CASE EVENT DATE: 20140424
